FAERS Safety Report 4638148-9 (Version None)
Quarter: 2005Q2

REPORT INFORMATION
  Report Type: 
  Country: None (occurrence: None)
  Receive Date: 20050418
  Receipt Date: 20050331
  Transmission Date: 20051028
  Serious: Yes (Hospitalization)
  Sender: FDA-Public Use
  Company Number: PHBS2005FI04736

PATIENT
  Age: 66 Year
  Sex: Female

DRUGS (5)
  1. LESCOL [Suspect]
     Indication: HYPERCHOLESTEROLAEMIA
     Dosage: 1 DF, QD
     Route: 048
     Dates: start: 20040701
  2. EMCONCOR [Concomitant]
     Indication: HYPERTENSION
     Dosage: 1 DF, QD
     Route: 048
  3. DUREKAL [Concomitant]
     Indication: BLOOD POTASSIUM DECREASED
  4. MYOCRISIN [Concomitant]
     Indication: RHEUMATOID ARTHRITIS
     Dosage: 1 G, QD
     Dates: start: 19980101
  5. HORMONE REPLACEMENT THERAPY [Concomitant]
     Dates: end: 20041001

REACTIONS (3)
  - ABDOMINAL PAIN UPPER [None]
  - DYSMENORRHOEA [None]
  - VAGINAL HAEMORRHAGE [None]
